FAERS Safety Report 19577999 (Version 1)
Quarter: 2021Q3

REPORT INFORMATION
  Report Type: Spontaneous
  Country: US (occurrence: US)
  Receive Date: 20210719
  Receipt Date: 20210719
  Transmission Date: 20211014
  Serious: No
  Sender: FDA-Public Use
  Company Number: US-CELGENEUS-USA-20210702647

PATIENT
  Sex: Female

DRUGS (2)
  1. POMALYST [Suspect]
     Active Substance: POMALIDOMIDE
     Indication: PLASMA CELL MYELOMA
     Dosage: TAKE 1 CAPSULE BY MOUTH EVERY DAY FOR 3 WEEKS ON FOLLOWED BY 1 WEEK OFF
     Route: 048
     Dates: start: 20170907
  2. POMALYST [Suspect]
     Active Substance: POMALIDOMIDE
     Indication: WALDENSTROM^S MACROGLOBULINAEMIA

REACTIONS (1)
  - Cystitis [Recovered/Resolved]
